FAERS Safety Report 4313891-X (Version None)
Quarter: 2004Q1

REPORT INFORMATION
  Report Type: 
  Country: None (occurrence: None)
  Receive Date: 20040305
  Receipt Date: 20040227
  Transmission Date: 20041129
  Serious: Yes (Death)
  Sender: FDA-Public Use
  Company Number: 2003126127

PATIENT
  Sex: Female

DRUGS (2)
  1. VFEND [Suspect]
     Indication: ILL-DEFINED DISORDER
  2. CASPOFUNGIN ACETATE (CASPOFUNGIN ACETATE ) [Concomitant]

REACTIONS (2)
  - HEPATIC INFECTION [None]
  - MUCORMYCOSIS [None]
